FAERS Safety Report 15231839 (Version 3)
Quarter: 2018Q4

REPORT INFORMATION
  Report Type: Spontaneous
  Country: US (occurrence: US)
  Receive Date: 20180802
  Receipt Date: 20181207
  Transmission Date: 20190204
  Serious: No
  Sender: FDA-Public Use
  Company Number: US-PFIZER INC-2018308281

PATIENT
  Age: 79 Year
  Sex: Female

DRUGS (19)
  1. IBRANCE [Suspect]
     Active Substance: PALBOCICLIB
     Dosage: 120 MG, UNK
  2. METOPROLOL T [Concomitant]
     Dosage: 100 MG, UNK
  3. PROBIOTIC [Concomitant]
     Active Substance: PROBIOTICS NOS
     Dosage: UNK
  4. VITAMIN D [Concomitant]
     Active Substance: CHOLECALCIFEROL
     Dosage: 2000 IU, UNK
  5. CALCIUM [Concomitant]
     Active Substance: CALCIUM
     Dosage: 600 MG, UNK
  6. VITAMIN E [Concomitant]
     Active Substance: .ALPHA.-TOCOPHEROL
     Dosage: UNK (POW)
  7. IBRANCE [Suspect]
     Active Substance: PALBOCICLIB
     Dosage: 75 MG, UNK
     Dates: end: 2018
  8. AZOPT [Concomitant]
     Active Substance: BRINZOLAMIDE
     Dosage: 1 %, UNK (SUS 1%)
  9. IBRANCE [Suspect]
     Active Substance: PALBOCICLIB
     Dosage: 125 MG, CYCLIC (TAKE ONE CAPSULE BY MOUTH ONCE DAILY WITH FOOD FOR 21DAYS, THEN 7 DAYS OFF)
     Route: 048
     Dates: start: 20180717, end: 201807
  10. ATORVASTATIN [Concomitant]
     Active Substance: ATORVASTATIN
     Dosage: UNK
  11. TIMOLOL MALE [Concomitant]
     Dosage: UNK (SOL 0.5%)
  12. TRAVATAN Z [Concomitant]
     Active Substance: TRAVOPROST
     Dosage: UNK (SOL 0.004%)
  13. LISINOPRIL. [Concomitant]
     Active Substance: LISINOPRIL
     Dosage: UNK (POW)
  14. IBRANCE [Suspect]
     Active Substance: PALBOCICLIB
     Dosage: 125 MG, CYCLIC (TAKE ONE CAPSULE BY MOUTH ONCE DAILY WITH FOOD FOR 21DAYS, THEN 7 DAYS OFF)
     Route: 048
     Dates: start: 20180719, end: 2018
  15. LEVOTHYROXIN [Concomitant]
     Active Substance: LEVOTHYROXINE
     Dosage: UNK (POW)
  16. OMEGA 3 [Concomitant]
     Active Substance: OMEGA-3 FATTY ACIDS
     Dosage: 1200 MG, UNK
  17. IBRANCE [Suspect]
     Active Substance: PALBOCICLIB
     Indication: BREAST CANCER METASTATIC
     Dosage: 125 MG, CYCLIC  (TAKE ONE CAPSULE BY MOUTH ONCE DAILY WITH FOOD FOR 21DAYS, THEN 7 DAYS OFF)
     Route: 048
     Dates: start: 201707
  18. VITAMIN C [Concomitant]
     Active Substance: ASCORBIC ACID
     Dosage: 1000 MG, UNK
  19. LETROZOLE. [Concomitant]
     Active Substance: LETROZOLE
     Dosage: UNK (POW)

REACTIONS (5)
  - Fatigue [Unknown]
  - Constipation [Unknown]
  - White blood cell count decreased [Not Recovered/Not Resolved]
  - White blood cell count increased [Unknown]
  - Arthralgia [Unknown]

NARRATIVE: CASE EVENT DATE: 201807
